FAERS Safety Report 6218518-8 (Version None)
Quarter: 2009Q2

REPORT INFORMATION
  Report Type: 
  Country: None (occurrence: None)
  Receive Date: 20090608
  Receipt Date: 20090528
  Transmission Date: 20091009
  Serious: Yes (Hospitalization, Other)
  Sender: FDA-Public Use
  Company Number: FI-JNJFOC-20090500272

PATIENT
  Sex: Female
  Weight: 70 kg

DRUGS (15)
  1. REMICADE [Suspect]
  2. REMICADE [Suspect]
  3. REMICADE [Suspect]
  4. REMICADE [Suspect]
     Indication: MYALGIA
  5. REMICADE [Suspect]
     Indication: ARTHRITIS
  6. REMICADE [Suspect]
     Indication: COLITIS ULCERATIVE
  7. BURANA [Concomitant]
  8. PREDNISOLONE [Concomitant]
  9. PREDNISOLONE [Concomitant]
  10. SANDIMMUNE [Concomitant]
  11. KALCIPOS D [Concomitant]
  12. CETIRIZINE [Concomitant]
     Indication: PREMEDICATION
  13. SOLU-CORTEF [Concomitant]
     Indication: PREMEDICATION
     Route: 042
  14. SALAZOPYRIN EN [Concomitant]
  15. LANSOPRAZOL [Concomitant]

REACTIONS (19)
  - ALOPECIA [None]
  - ANAPHYLACTOID REACTION [None]
  - ARTHRALGIA [None]
  - DRUG INEFFECTIVE [None]
  - FEELING COLD [None]
  - HYPERSENSITIVITY [None]
  - INFECTION [None]
  - INFUSION RELATED REACTION [None]
  - JOINT ARTHROPLASTY [None]
  - JOINT STIFFNESS [None]
  - JOINT SWELLING [None]
  - OPTIC ISCHAEMIC NEUROPATHY [None]
  - OSTEOPENIA [None]
  - POLYMYALGIA RHEUMATICA [None]
  - PRURITUS [None]
  - SKIN DISORDER [None]
  - SYNOVITIS [None]
  - URTICARIA [None]
  - VISUAL IMPAIRMENT [None]
